FAERS Safety Report 15123335 (Version 1)
Quarter: 2018Q3

REPORT INFORMATION
  Report Type: Spontaneous
  Country: US (occurrence: US)
  Receive Date: 20180709
  Receipt Date: 20180709
  Transmission Date: 20181010
  Serious: No
  Sender: FDA-Public Use
  Company Number: US-SHIRE-US201824477

PATIENT
  Age: 17 Year
  Sex: Female
  Weight: 56.24 kg

DRUGS (1)
  1. XIIDRA [Suspect]
     Active Substance: LIFITEGRAST
     Indication: DRY EYE
     Dosage: 1 GTT, 2X/DAY:BID
     Route: 047
     Dates: start: 20180522, end: 20180523

REACTIONS (6)
  - Crying [Recovered/Resolved]
  - Screaming [Recovered/Resolved]
  - Instillation site reaction [Unknown]
  - Instillation site erythema [Recovered/Resolved]
  - Instillation site pain [Recovered/Resolved]
  - Instillation site discomfort [Recovered/Resolved]

NARRATIVE: CASE EVENT DATE: 20180522
